FAERS Safety Report 7406196-1 (Version None)
Quarter: 2011Q2

REPORT INFORMATION
  Report Type: 
  Country: None (occurrence: None)
  Receive Date: 20110411
  Receipt Date: 20110331
  Transmission Date: 20111010
  Serious: Yes (Hospitalization)
  Sender: FDA-Public Use
  Company Number: JP-ASTRAZENECA-2011SE14266

PATIENT
  Age: 23079 Day
  Sex: Male
  Weight: 51 kg

DRUGS (16)
  1. DRIED ALUMINUM HYDROXIDE GEL [Concomitant]
     Indication: GASTRITIS
     Dosage: DOSE UNKNOWN
     Route: 048
     Dates: start: 20101001, end: 20110130
  2. HEPARIN SODIUM [Concomitant]
     Indication: CATHETERISATION CARDIAC
     Dosage: DOSE UNKNOWN
     Route: 065
     Dates: start: 20110127, end: 20110127
  3. APLACE [Concomitant]
     Indication: GASTRITIS
     Dosage: DOSE UNKNOWN
     Route: 048
     Dates: start: 20101001, end: 20110130
  4. SODIUM BICARBONATE [Concomitant]
     Indication: GASTRITIS
     Dosage: DOSE UNKNOWN
     Route: 048
     Dates: start: 20101001, end: 20110130
  5. GENTIAN [Concomitant]
     Indication: GASTRITIS
     Dosage: DOSE UNKNOWN
     Route: 048
     Dates: start: 20101001, end: 20110130
  6. SYMBICORT [Suspect]
     Indication: CHRONIC OBSTRUCTIVE PULMONARY DISEASE
     Dosage: 160/4.5 UG TWO INHALATION TWO TIMES A DAY
     Route: 055
     Dates: start: 20100929
  7. BONALON 35MG [Concomitant]
     Indication: OSTEOPOROSIS
     Route: 048
     Dates: start: 20100907
  8. XYLOCAINE [Concomitant]
     Indication: CATHETERISATION CARDIAC
     Dosage: DOSE UNKNOWN
     Route: 065
     Dates: start: 20110127, end: 20110127
  9. SULTANOL [Concomitant]
     Indication: CHRONIC OBSTRUCTIVE PULMONARY DISEASE
     Route: 055
     Dates: start: 20100907
  10. GASMOTIN [Concomitant]
     Indication: GASTRITIS
     Dosage: DOSE UNKNOWN
     Route: 048
     Dates: start: 20101001, end: 20110130
  11. MAGNESIUM OXIDE [Concomitant]
     Indication: GASTRITIS
     Dosage: DOSE UNKNOWN
     Route: 048
     Dates: start: 20101001, end: 20110130
  12. PNEUMOVAX NP [Concomitant]
     Indication: IMMUNISATION
     Dosage: DOSE UNKNOWN
     Route: 065
     Dates: start: 20101207, end: 20101207
  13. PROTAMINE SULFATE [Concomitant]
     Indication: CATHETERISATION CARDIAC
     Dosage: DOSE UNKNOWN
     Route: 065
     Dates: start: 20110127, end: 20110127
  14. SPIRIVA [Concomitant]
     Indication: CHRONIC OBSTRUCTIVE PULMONARY DISEASE
     Route: 055
  15. NITROGLYCERIN [Concomitant]
     Indication: CATHETERISATION CARDIAC
     Dosage: DOSE UNKNOWN
     Route: 065
     Dates: start: 20110127, end: 20110127
  16. L-GLUTAMINE [Concomitant]
     Indication: GASTRITIS
     Dosage: DOSE UNKNOWN
     Route: 048
     Dates: start: 20101001, end: 20110130

REACTIONS (1)
  - CHRONIC OBSTRUCTIVE PULMONARY DISEASE [None]
